FAERS Safety Report 8334659-3 (Version None)
Quarter: 2012Q2

REPORT INFORMATION
  Report Type: 
  Country: None (occurrence: None)
  Receive Date: 20120503
  Receipt Date: 20120426
  Transmission Date: 20120825
  Serious: Yes (Other)
  Sender: FDA-Public Use
  Company Number: AU-ROCHE-1060930

PATIENT
  Sex: Female

DRUGS (6)
  1. ALPHAGAN [Concomitant]
  2. LUCENTIS [Suspect]
     Route: 050
     Dates: start: 20120113
  3. LUMIGAN [Concomitant]
  4. LUCENTIS [Suspect]
     Route: 050
     Dates: start: 20111123
  5. LUCENTIS [Suspect]
     Indication: AGE-RELATED MACULAR DEGENERATION
     Route: 050
     Dates: start: 20090701
  6. AZOPT [Concomitant]

REACTIONS (1)
  - CATARACT OPERATION [None]
